FAERS Safety Report 14221230 (Version 2)
Quarter: 2017Q4

REPORT INFORMATION
  Report Type: Spontaneous
  Country: US (occurrence: US)
  Receive Date: 20171124
  Receipt Date: 20171227
  Transmission Date: 20180321
  Serious: No
  Sender: FDA-Public Use
  Company Number: US-PFIZER INC-2017505492

PATIENT
  Age: 64 Year
  Sex: Male
  Weight: 94 kg

DRUGS (5)
  1. LIPITOR [Suspect]
     Active Substance: ATORVASTATIN CALCIUM
     Indication: HIGH DENSITY LIPOPROTEIN ABNORMAL
     Dosage: 10 MG, DAILY
     Route: 048
     Dates: start: 20080423, end: 20160613
  2. TRICOR [Concomitant]
     Active Substance: FENOFIBRATE
     Indication: BLOOD TRIGLYCERIDES ABNORMAL
     Dosage: 160 MG, 1X/DAY
  3. LIPITOR [Suspect]
     Active Substance: ATORVASTATIN CALCIUM
     Indication: HYPERLIPIDAEMIA
     Dosage: 40 MG, DAILY
     Route: 048
     Dates: start: 20171025
  4. CARVEDILOL. [Concomitant]
     Active Substance: CARVEDILOL
     Indication: HYPERTENSION
     Dosage: 25 MG, 2X/DAY
  5. LIPITOR [Suspect]
     Active Substance: ATORVASTATIN CALCIUM
     Indication: LOW DENSITY LIPOPROTEIN ABNORMAL
     Dosage: 20 MG, DAILY
     Route: 048
     Dates: start: 20160614, end: 20171024

REACTIONS (2)
  - Rash erythematous [Not Recovered/Not Resolved]
  - Cough [Not Recovered/Not Resolved]

NARRATIVE: CASE EVENT DATE: 2017
